FAERS Safety Report 16068202 (Version 1)
Quarter: 2019Q1

REPORT INFORMATION
  Report Type: Spontaneous
  Country: US (occurrence: US)
  Receive Date: 20190313
  Receipt Date: 20190313
  Transmission Date: 20190418
  Serious: No
  Sender: FDA-Public Use
  Company Number: US-ALEXION PHARMACEUTICALS INC.-A201903568

PATIENT
  Age: 68 Year
  Sex: Female

DRUGS (1)
  1. STRENSIQ [Suspect]
     Active Substance: ASFOTASE ALFA
     Indication: HYPOPHOSPHATASIA
     Dosage: 1 MG/KG, QD
     Route: 058
     Dates: start: 201703

REACTIONS (6)
  - Blood alkaline phosphatase increased [Unknown]
  - Incorrect dose administered [Unknown]
  - Inappropriate schedule of product administration [Unknown]
  - Blood alkaline phosphatase decreased [Unknown]
  - Vitamin B6 increased [Unknown]
  - Gene mutation [Unknown]
